FAERS Safety Report 11477433 (Version 1)
Quarter: 2015Q3

REPORT INFORMATION
  Report Type: Spontaneous
  Country: US (occurrence: US)
  Receive Date: 20150909
  Receipt Date: 20150909
  Transmission Date: 20151125
  Serious: Yes (Disabling)
  Sender: FDA-Public Use
  Company Number: US-SA-2015SA135226

PATIENT
  Sex: Male

DRUGS (1)
  1. PHISOHEX [Suspect]
     Active Substance: HEXACHLOROPHENE
     Route: 065

REACTIONS (1)
  - Neuropathy peripheral [Unknown]
